FAERS Safety Report 9454753 (Version 3)
Quarter: 2014Q2

REPORT INFORMATION
  Report Type: Report from Study
  Country: JP (occurrence: JP)
  Receive Date: 20130812
  Receipt Date: 20140422
  Transmission Date: 20141212
  Serious: Yes (Hospitalization)
  Sender: FDA-Public Use
  Company Number: JP-B.I. PHARMACEUTICALS,INC./RIDGEFIELD-2013-BI-23786NB

PATIENT
  Age: 85 Year
  Sex: Male
  Weight: 72.3 kg

DRUGS (10)
  1. PRAZAXA [Suspect]
     Indication: ATRIAL FIBRILLATION
     Dosage: 220 MG
     Route: 048
     Dates: start: 20130711, end: 20130725
  2. PRAZAXA [Suspect]
     Indication: CEREBROVASCULAR ACCIDENT PROPHYLAXIS
  3. PRAZAXA [Suspect]
     Indication: THROMBOSIS PROPHYLAXIS
  4. AMLODIPINE / AMLODIPINE BESILATE [Concomitant]
     Dosage: 5 MG
     Route: 048
  5. CARDENALIN / DOXAZOSIN MESILATE [Concomitant]
     Dosage: 1 MG
     Route: 048
  6. NORVASC / AMLODIPINE BESILATE [Concomitant]
     Dosage: 5 MG
     Route: 048
  7. DILTIAZEM HYDROCHLORIDE / DILTIAZEM HYDROCHLORIDE [Concomitant]
     Dosage: 200 MG
     Route: 048
  8. TAMBOCOR / FLECAINIDE ACETATE [Concomitant]
     Dosage: 200 MG
     Route: 048
  9. TAKEPRON / LANSOPRAZOLE [Concomitant]
     Dosage: 30 MG
     Route: 048
  10. LOXONIN / LOXOPROFEN SODIUM HYDRATE [Concomitant]
     Route: 061

REACTIONS (1)
  - Interstitial lung disease [Recovered/Resolved]
